FAERS Safety Report 6415125-9 (Version None)
Quarter: 2009Q4

REPORT INFORMATION
  Report Type: 
  Country: None (occurrence: None)
  Receive Date: 20091027
  Receipt Date: 20091014
  Transmission Date: 20100525
  Serious: Yes (Hospitalization)
  Sender: FDA-Public Use
  Company Number: US-BIOGENIDEC-2009BI028455

PATIENT
  Age: 56 Year
  Sex: Male

DRUGS (1)
  1. TYSABRI [Suspect]
     Indication: MULTIPLE SCLEROSIS
     Route: 042
     Dates: start: 20090526, end: 20090723

REACTIONS (4)
  - PNEUMONIA [None]
  - SEPTIC SHOCK [None]
  - T-LYMPHOCYTE COUNT DECREASED [None]
  - UROSEPSIS [None]
